FAERS Safety Report 6355993-2 (Version None)
Quarter: 2009Q3

REPORT INFORMATION
  Report Type: 
  Country: None (occurrence: None)
  Receive Date: 20090915
  Receipt Date: 20090904
  Transmission Date: 20100115
  Serious: Yes (Other)
  Sender: FDA-Public Use
  Company Number: US-AMGEN-QUU363319

PATIENT
  Sex: Female

DRUGS (4)
  1. ENBREL [Suspect]
     Indication: PSORIATIC ARTHROPATHY
     Route: 058
     Dates: start: 20051102
  2. REMICADE [Concomitant]
  3. HUMIRA [Concomitant]
  4. ORENCIA [Concomitant]

REACTIONS (9)
  - BLOOD PRESSURE DECREASED [None]
  - BREAST MASS [None]
  - COLD SWEAT [None]
  - DRUG INEFFECTIVE [None]
  - NO THERAPEUTIC RESPONSE [None]
  - NODULE ON EXTREMITY [None]
  - PAIN IN EXTREMITY [None]
  - SYNCOPE [None]
  - VOMITING [None]
